FAERS Safety Report 19384322 (Version 3)
Quarter: 2021Q2

REPORT INFORMATION
  Report Type: Report from Study
  Country: None (occurrence: CH)
  Receive Date: 20210608
  Receipt Date: 20210629
  Transmission Date: 20210717
  Serious: Yes (Hospitalization)
  Sender: FDA-Public Use
  Company Number: CH-ABBVIE-21K-151-3936069-00

PATIENT
  Age: 77 Year
  Sex: Female

DRUGS (5)
  1. DUODOPA [Suspect]
     Active Substance: CARBIDOPA\LEVODOPA
     Dosage: MD: 2.5 ML, CRD: 5.0 ML/H, CRN: 3.5 ML/H, ED: 1 ML
     Route: 050
     Dates: start: 20210413, end: 20210421
  2. DUODOPA [Suspect]
     Active Substance: CARBIDOPA\LEVODOPA
     Dosage: MD: 3.0 ML, CRD: 4.9 ML/H, CRN: 3.5 ML/H, ED: 1.5 ML
     Route: 050
     Dates: start: 20210511, end: 20210604
  3. DUODOPA [Suspect]
     Active Substance: CARBIDOPA\LEVODOPA
     Dosage: MD: 5.5 ML, CRD: 4.8 ML/H, CRN: 3.5 ML/H, ED: 1 ML
     Route: 050
     Dates: start: 20210421, end: 20210511
  4. DUODOPA [Suspect]
     Active Substance: CARBIDOPA\LEVODOPA
     Dosage: MD: 3.0 ML, CRD: 3.3 ML/H, CRN: 2.8 ML/H, ED: 1.5 ML
     Route: 050
     Dates: start: 20210604
  5. DUODOPA [Suspect]
     Active Substance: CARBIDOPA\LEVODOPA
     Indication: PARKINSON^S DISEASE
     Dosage: MD: 2.5 ML, CRD: 3.6 ML/H, CRN: 2.4 ML/H, ED: 1 ML
     Route: 050
     Dates: start: 20210412, end: 20210413

REACTIONS (2)
  - Fall [Not Recovered/Not Resolved]
  - Hallucination [Recovering/Resolving]

NARRATIVE: CASE EVENT DATE: 20210530
